FAERS Safety Report 4497416-4 (Version None)
Quarter: 2004Q4

REPORT INFORMATION
  Report Type: 
  Country: None (occurrence: None)
  Receive Date: 20041104
  Receipt Date: 20040909
  Transmission Date: 20050328
  Serious: Yes (Hospitalization)
  Sender: FDA-Public Use
  Company Number: STA-AE-04-030

PATIENT
  Age: 81 Year
  Sex: Male

DRUGS (2)
  1. DILTIAZEM [Suspect]
     Indication: HYPERTENSION
     Dosage: 120  UNK  PER DAY, ORAL
     Route: 048
  2. ACYCLOVIR [Suspect]
     Indication: HERPES VIRUS INFECTION

REACTIONS (3)
  - LEUKOPENIA [None]
  - RENAL IMPAIRMENT [None]
  - THROMBOCYTOPENIA [None]
